FAERS Safety Report 25396875 (Version 3)
Quarter: 2025Q2

REPORT INFORMATION
  Report Type: Spontaneous
  Country: US (occurrence: US)
  Receive Date: 20250604
  Receipt Date: 20250624
  Transmission Date: 20250717
  Serious: Yes (Hospitalization, Other)
  Sender: SANOFI AVENTIS
  Company Number: US-SA-2025SA158330

PATIENT
  Age: 84 Year
  Sex: Male

DRUGS (2)
  1. DUPIXENT [Suspect]
     Active Substance: DUPILUMAB
     Indication: Dermatitis atopic
     Route: 058
  2. DUPIXENT [Suspect]
     Active Substance: DUPILUMAB
     Dosage: 300 MG, QOW
     Route: 058

REACTIONS (8)
  - Cellulitis [Unknown]
  - Skin weeping [Unknown]
  - Blood sodium abnormal [Unknown]
  - Inappropriate antidiuretic hormone secretion [Unknown]
  - Erythema [Unknown]
  - Periorbital swelling [Unknown]
  - Blood sodium decreased [Unknown]
  - Swelling face [Unknown]

NARRATIVE: CASE EVENT DATE: 20250101
